FAERS Safety Report 5036284-9 (Version None)
Quarter: 2006Q2

REPORT INFORMATION
  Report Type: 
  Country: None (occurrence: None)
  Receive Date: 20060601
  Receipt Date: 20051110
  Transmission Date: 20061013
  Serious: No
  Sender: FDA-Public Use
  Company Number: US200511000610

PATIENT
  Sex: Female

DRUGS (5)
  1. CYMBALTA [Suspect]
     Indication: PAIN
     Dosage: 60 MG, DAILY (1/D)
     Dates: start: 20050601, end: 20050901
  2. PROZAC WEEKLY [Suspect]
     Dosage: 2 D/F, WEELY (1/W)
     Dates: start: 20050101
  3. FLUOXETINE HCL [Suspect]
     Dosage: 20 MG, DAILY (1/D)
     Dates: start: 20050901
  4. WELLBUTRIN SR [Concomitant]
  5. NEURONTIN [Concomitant]

REACTIONS (6)
  - ANOREXIA [None]
  - HEART RATE IRREGULAR [None]
  - MALAISE [None]
  - PARAESTHESIA [None]
  - PRESCRIBED OVERDOSE [None]
  - WEIGHT DECREASED [None]
